FAERS Safety Report 6021942-X (Version None)
Quarter: 2008Q4

REPORT INFORMATION
  Report Type: 
  Country: None (occurrence: None)
  Receive Date: 20081229
  Receipt Date: 20081216
  Transmission Date: 20090506
  Serious: Yes (Hospitalization)
  Sender: FDA-Public Use
  Company Number: FR-ROCHE-603437

PATIENT
  Sex: Female

DRUGS (1)
  1. ROCEPHIN [Suspect]
     Indication: DRUG USE FOR UNKNOWN INDICATION
     Dosage: DOSE FORM: INJECTABLE SOLUTION.
     Route: 065
     Dates: start: 20081102, end: 20081109

REACTIONS (3)
  - CHOLECYSTITIS [None]
  - CHOLESTASIS [None]
  - PANCREATITIS [None]
